FAERS Safety Report 23232524 (Version 1)
Quarter: 2023Q4

REPORT INFORMATION
  Report Type: Spontaneous
  Country: US (occurrence: US)
  Receive Date: 20231128
  Receipt Date: 20231128
  Transmission Date: 20240109
  Serious: No
  Sender: FDA-Public Use
  Company Number: US-SA-SAC20231120001139

PATIENT
  Age: 2 Year
  Sex: Male

DRUGS (1)
  1. DUPIXENT [Suspect]
     Active Substance: DUPILUMAB
     Indication: Dermatitis atopic
     Dosage: 200 MG, Q4W
     Route: 058

REACTIONS (7)
  - Rash erythematous [Unknown]
  - Eyelid margin crusting [Unknown]
  - Scab [Unknown]
  - Skin exfoliation [Unknown]
  - Pruritus [Recovering/Resolving]
  - Eczema [Unknown]
  - Eye inflammation [Unknown]

NARRATIVE: CASE EVENT DATE: 20231101
